FAERS Safety Report 22669621 (Version 3)
Quarter: 2024Q1

REPORT INFORMATION
  Report Type: Spontaneous
  Country: US (occurrence: US)
  Receive Date: 20230704
  Receipt Date: 20240228
  Transmission Date: 20240410
  Serious: No
  Sender: FDA-Public Use
  Company Number: US-SA-SAC20230703000242

PATIENT
  Age: 36 Year
  Sex: Male
  Weight: 95 kg

DRUGS (4)
  1. ALTUVIIIO [Suspect]
     Active Substance: EFANESOCTOCOG ALFA
     Indication: Haemorrhage prophylaxis
     Dosage: UNK UNK, Q4D
     Route: 042
     Dates: start: 202306
  2. ALTUVIIIO [Suspect]
     Active Substance: EFANESOCTOCOG ALFA
     Indication: Factor VIII deficiency
     Dosage: 50 IU/KG (4800 UNITS +/-10%), QW
     Route: 042
     Dates: start: 20230615, end: 2023
  3. HEMLIBRA [Concomitant]
     Active Substance: EMICIZUMAB-KXWH
     Dosage: UNK
  4. ADVATE [Concomitant]
     Active Substance: ANTIHEMOPHILIC FACTOR, HUMAN RECOMBINANT
     Dosage: UNK

REACTIONS (4)
  - Infusion related hypersensitivity reaction [Recovered/Resolved]
  - Rash erythematous [Recovered/Resolved]
  - Injection site erythema [Recovered/Resolved]
  - Inappropriate schedule of product administration [Unknown]

NARRATIVE: CASE EVENT DATE: 20230601
